FAERS Safety Report 4996019-2 (Version None)
Quarter: 2006Q2

REPORT INFORMATION
  Report Type: 
  Country: None (occurrence: None)
  Receive Date: 20060504
  Receipt Date: 20060421
  Transmission Date: 20061013
  Serious: Yes (Other)
  Sender: FDA-Public Use
  Company Number: GXKR2006IL00952

PATIENT
  Age: 6 Year
  Sex: Female

DRUGS (3)
  1. IBUPROFEN [Suspect]
     Indication: PYREXIA
     Dosage: 3 DOSES, ORAL
     Route: 048
  2. ACETAMINOPHEN [Suspect]
     Indication: PYREXIA
     Dosage: ONCE/SINGLE, ORAL
     Route: 048
  3. ASPIRIN [Suspect]
     Dosage: 2.5 MG/KG, QH, ORAL
     Route: 048

REACTIONS (7)
  - ANGIONEUROTIC OEDEMA [None]
  - BRONCHOSPASM [None]
  - DRUG HYPERSENSITIVITY [None]
  - FACE OEDEMA [None]
  - PERIORBITAL OEDEMA [None]
  - RESPIRATORY DISTRESS [None]
  - URTICARIA [None]
